FAERS Safety Report 7947156-1 (Version None)
Quarter: 2011Q4

REPORT INFORMATION
  Report Type: 
  Country: None (occurrence: None)
  Receive Date: 20111129
  Receipt Date: 20111115
  Transmission Date: 20120403
  Serious: Yes (Other)
  Sender: FDA-Public Use
  Company Number: US-ASTRAZENECA-2011SE69683

PATIENT
  Age: 92 Year
  Sex: Male

DRUGS (3)
  1. TOPROL-XL [Suspect]
     Route: 048
  2. NEXIUM [Suspect]
     Route: 048
  3. PAXIL [Concomitant]

REACTIONS (4)
  - FALL [None]
  - AMNESIA [None]
  - GAIT DISTURBANCE [None]
  - JOINT INJURY [None]
